FAERS Safety Report 15632628 (Version 1)
Quarter: 2018Q4

REPORT INFORMATION
  Report Type: Spontaneous
  Country: US (occurrence: US)
  Receive Date: 20181119
  Receipt Date: 20181119
  Transmission Date: 20190205
  Serious: No
  Sender: FDA-Public Use
  Company Number: US-PFIZER INC-2018476000

PATIENT
  Age: 65 Year
  Sex: Female
  Weight: 140 kg

DRUGS (3)
  1. NEXIUM [ESOMEPRAZOLE MAGNESIUM] [Concomitant]
  2. LIPITOR [Concomitant]
     Active Substance: ATORVASTATIN CALCIUM
  3. DOCETAXEL. [Suspect]
     Active Substance: DOCETAXEL
     Dosage: 7 CYCLES, EVERY 3 WEEKS
     Dates: start: 201008, end: 201012

REACTIONS (5)
  - Alopecia [Not Recovered/Not Resolved]
  - Madarosis [Unknown]
  - Hair disorder [Not Recovered/Not Resolved]
  - Hair texture abnormal [Not Recovered/Not Resolved]
  - Hair colour changes [Not Recovered/Not Resolved]

NARRATIVE: CASE EVENT DATE: 2010
